FAERS Safety Report 9505734 (Version 1)
Quarter: 2013Q1

REPORT INFORMATION
  Report Type: Spontaneous
  Country: US (occurrence: None)
  Receive Date: 20130220
  Receipt Date: 20130220
  Transmission Date: 20140127
  Serious: No
  Sender: FDA-Public Use
  Company Number: 1000040675

PATIENT
  Age: 49 Year
  Sex: Female

DRUGS (12)
  1. VIIBRYD [Suspect]
     Indication: DEPRESSION
     Route: 048
     Dates: start: 201209, end: 2012
  2. VIIBRYD [Suspect]
     Indication: DEPRESSION
     Route: 048
     Dates: start: 2012, end: 20121112
  3. VIIBRYD [Suspect]
     Indication: DEPRESSION
     Route: 048
     Dates: start: 20121113, end: 20121119
  4. DIGOXIN (DIGOXIN) (DIGOXIN) [Concomitant]
  5. DILTIAZEM (DILTIAZEM HYDROCHLORIDE) (DILTIAZEM HYDROCHLORIDE) [Concomitant]
  6. METHYLPHENIDATE (METHYLPHENIDATE) (METHYLPHENIDATE) [Concomitant]
  7. CLONAZEPAM (CLONAZEPAM) (CLONAZEPAM) [Concomitant]
  8. GABAPENTIN (GABAPENTIN) (GABAPENTIN) [Concomitant]
  9. VICODIN (ACETAMINOPHEN, HYDROCODONE) (ACETAMINOPHEN, HYDROCODOE) [Concomitant]
  10. ADVAIR (SERETIDE) (SERETIDE) [Concomitant]
  11. OMEPRAZOLE (OMEPRAZOLE) (OMEPRAZOLE0 [Concomitant]
  12. CALCIUM (CALCIUM) (CALCIUM) [Concomitant]

REACTIONS (6)
  - Weight increased [None]
  - Heart rate irregular [None]
  - Feeling hot [None]
  - Dizziness [None]
  - Arthralgia [None]
  - Muscle spasms [None]
